FAERS Safety Report 9701470 (Version 1)
Quarter: 2013Q4

REPORT INFORMATION
  Report Type: Spontaneous
  Country: US (occurrence: US)
  Receive Date: 20131121
  Receipt Date: 20131121
  Transmission Date: 20140711
  Serious: Yes (Other)
  Sender: FDA-Public Use
  Company Number: US-NAPPMUNDI-USA-2013-0108539

PATIENT
  Age: 55 Year
  Sex: Male

DRUGS (1)
  1. OXYCONTIN (NDA 22-272) [Suspect]
     Indication: SPINAL DISORDER
     Dosage: 160 MG, Q12H
     Route: 048
     Dates: start: 2010

REACTIONS (2)
  - Coronary artery bypass [Recovered/Resolved]
  - Impaired healing [Unknown]
